FAERS Safety Report 4953806-4 (Version None)
Quarter: 2006Q1

REPORT INFORMATION
  Report Type: 
  Country: None (occurrence: None)
  Receive Date: 20060327
  Receipt Date: 20040216
  Transmission Date: 20060701
  Serious: Yes (Hospitalization, Other)
  Sender: FDA-Public Use
  Company Number: DE-BRISTOL-MYERS SQUIBB COMPANY-12508792

PATIENT
  Age: 83 Year
  Sex: Male

DRUGS (6)
  1. KARVEA TABS 150 MG [Suspect]
     Indication: HYPERTENSION
     Dosage: 1/2 TABLET BID 2002 TO 2005, INCREASED TO 1 TABLET BID
     Dates: start: 20020101
  2. DEXAMETHASONE TAB [Concomitant]
     Indication: OSTEOARTHRITIS
     Dosage: 1 AMPULE IN MAR-2003 AND 1 AMPULE ON 24-APR-2002.
     Route: 014
     Dates: start: 20030303
  3. DEXAMETHASONE TAB [Concomitant]
     Indication: BACK PAIN
     Dosage: 1 AMPULE IN MAR-2003 AND 1 AMPULE ON 24-APR-2002.
     Route: 014
     Dates: start: 20030303
  4. DICLOFENAC [Concomitant]
     Route: 048
  5. BETAMETHASONE [Concomitant]
     Dosage: 1 AMPULE
     Dates: start: 20020527, end: 20030527
  6. PIROXICAM [Concomitant]
     Dosage: 1 AMPULE
     Route: 030
     Dates: start: 20020527

REACTIONS (3)
  - INTERVERTEBRAL DISC PROTRUSION [None]
  - PAIN IN EXTREMITY [None]
  - SPINAL OSTEOARTHRITIS [None]
